FAERS Safety Report 8618688 (Version 6)
Quarter: 2014Q1

REPORT INFORMATION
  Report Type: Spontaneous
  Country: US (occurrence: US)
  Receive Date: 20120618
  Receipt Date: 20140214
  Transmission Date: 20141002
  Serious: Yes (Death, Other)
  Sender: FDA-Public Use
  Company Number: US-PFIZER INC-2012141266

PATIENT
  Age: 78 Year
  Sex: Male

DRUGS (4)
  1. LYRICA [Suspect]
     Indication: DIABETIC NEUROPATHY
     Dosage: UNK
     Dates: start: 20111214
  2. LYRICA [Suspect]
     Dosage: 50 MG, 2X/DAY
     Route: 048
  3. DETROL [Suspect]
     Dosage: UNK
  4. DILANTIN-125 [Suspect]
     Dosage: UNK

REACTIONS (8)
  - Death [Fatal]
  - Cerebrovascular accident [Unknown]
  - Pyrexia [Unknown]
  - Appetite disorder [Unknown]
  - Feeling abnormal [Unknown]
  - Fall [Unknown]
  - Urinary incontinence [Unknown]
  - Pain in extremity [Unknown]
